FAERS Safety Report 4463869-0 (Version None)
Quarter: 2004Q3

REPORT INFORMATION
  Report Type: 
  Country: None (occurrence: None)
  Receive Date: 20040929
  Receipt Date: 20040913
  Transmission Date: 20050211
  Serious: Yes (Death, Hospitalization)
  Sender: FDA-Public Use
  Company Number: WAES 0409USA00586

PATIENT
  Age: 95 Year
  Sex: Female

DRUGS (1)
  1. COZAAR [Suspect]
     Indication: HYPERTENSION
     Dosage: 50 MG/DAILY PO
     Route: 048
     Dates: start: 20011015, end: 20040112

REACTIONS (4)
  - BEDRIDDEN [None]
  - FEMORAL NECK FRACTURE [None]
  - ORAL ADMINISTRATION COMPLICATION [None]
  - PNEUMONIA [None]
